FAERS Safety Report 18261090 (Version 2)
Quarter: 2021Q1

REPORT INFORMATION
  Report Type: Other
  Country: US (occurrence: US)
  Receive Date: 20200914
  Receipt Date: 20210203
  Transmission Date: 20210419
  Serious: Yes (Hospitalization, Other)
  Sender: FDA-Public Use
  Company Number: US-ROCHE-2672435

PATIENT
  Age: 62 Year
  Sex: Female
  Weight: 65.83 kg

DRUGS (2)
  1. OCREVUS [Suspect]
     Active Substance: OCRELIZUMAB
     Indication: RELAPSING MULTIPLE SCLEROSIS
     Route: 042
     Dates: start: 20170420
  2. OCREVUS [Suspect]
     Active Substance: OCRELIZUMAB
     Dosage: 300 MG AT DAY 1 AND DAY 15
     Route: 042

REACTIONS (4)
  - Alopecia [Not Recovered/Not Resolved]
  - Multiple sclerosis relapse [Unknown]
  - COVID-19 [Recovered/Resolved with Sequelae]
  - Pyrexia [Unknown]

NARRATIVE: CASE EVENT DATE: 202005
